FAERS Safety Report 21417106 (Version 1)
Quarter: 2022Q4

REPORT INFORMATION
  Report Type: Spontaneous
  Country: US (occurrence: US)
  Receive Date: 20221006
  Receipt Date: 20221006
  Transmission Date: 20230112
  Serious: No
  Sender: FDA-Public Use
  Company Number: US-BRISTOL-MYERS SQUIBB COMPANY-2022-113437

PATIENT
  Age: 70 Year
  Sex: Male
  Weight: 104.33 kg

DRUGS (1)
  1. REVLIMID [Suspect]
     Active Substance: LENALIDOMIDE
     Indication: Lung carcinoma cell type unspecified stage 0
     Route: 048

REACTIONS (2)
  - COVID-19 [Unknown]
  - Intentional product use issue [Unknown]
